FAERS Safety Report 13010317 (Version 4)
Quarter: 2017Q1

REPORT INFORMATION
  Report Type: Report from Study
  Country: IT (occurrence: IT)
  Receive Date: 20161208
  Receipt Date: 20170210
  Transmission Date: 20170428
  Serious: Yes (Death, Other)
  Sender: FDA-Public Use
  Company Number: PHHY2015IT144721

PATIENT
  Age: 91 Year
  Sex: Male

DRUGS (1)
  1. TASIGNA [Suspect]
     Active Substance: NILOTINIB
     Indication: CHRONIC MYELOID LEUKAEMIA
     Dosage: UNK
     Route: 048

REACTIONS (6)
  - Hepatobiliary disease [Unknown]
  - Hepatic cancer [Fatal]
  - Dysphagia [Unknown]
  - Weight decreased [Unknown]
  - Second primary malignancy [Fatal]
  - Hepatic failure [Unknown]

NARRATIVE: CASE EVENT DATE: 20151016
